FAERS Safety Report 5813540-5 (Version None)
Quarter: 2008Q3

REPORT INFORMATION
  Report Type: 
  Country: None (occurrence: None)
  Receive Date: 20080717
  Receipt Date: 20080711
  Transmission Date: 20090109
  Serious: Yes (Hospitalization)
  Sender: FDA-Public Use
  Company Number: US-MERCK-0707USA02673

PATIENT
  Age: 67 Year
  Sex: Female
  Weight: 80 kg

DRUGS (6)
  1. FOSAMAX [Suspect]
     Indication: OSTEOPOROSIS
     Route: 048
     Dates: start: 19960101, end: 20060101
  2. FOSAMAX [Suspect]
     Route: 048
     Dates: start: 19980601
  3. FOSAMAX [Suspect]
     Route: 048
     Dates: start: 20010801
  4. HYZAAR [Concomitant]
     Route: 065
     Dates: start: 19900101
  5. LEVOTHYROXINE SODIUM [Concomitant]
     Indication: THYROID DISORDER
     Route: 065
     Dates: start: 19900101
  6. VERAPAMIL [Concomitant]
     Indication: HYPERTENSION
     Route: 065
     Dates: start: 19900101

REACTIONS (21)
  - ARTHRITIS [None]
  - CATARACT [None]
  - CYSTOCELE [None]
  - DENTAL CARIES [None]
  - ESCHERICHIA URINARY TRACT INFECTION [None]
  - FIBROCYSTIC BREAST DISEASE [None]
  - HAEMORRHOIDS [None]
  - HYPERSENSITIVITY [None]
  - ORAL INFECTION [None]
  - OSTEOARTHRITIS [None]
  - OVERWEIGHT [None]
  - POSTMENOPAUSAL HAEMORRHAGE [None]
  - RECTOCELE [None]
  - RHINITIS PERENNIAL [None]
  - STOMATITIS [None]
  - TOOTH ABSCESS [None]
  - TOOTH FRACTURE [None]
  - TOOTH LOSS [None]
  - TYPE 2 DIABETES MELLITUS [None]
  - UPPER RESPIRATORY TRACT INFECTION [None]
  - UTERINE POLYP [None]
